FAERS Safety Report 8956664 (Version 1)
Quarter: 2012Q4

REPORT INFORMATION
  Report Type: 
  Country: IN (occurrence: IN)
  Receive Date: 20121210
  Receipt Date: 20121210
  Transmission Date: 20130627
  Serious: Yes (Death)
  Sender: FDA-Public Use
  Company Number: PHHY2011IN71728

PATIENT
  Age: 68 Year
  Sex: Male

DRUGS (2)
  1. GLIVEC [Suspect]
     Indication: CHRONIC MYELOID LEUKAEMIA
     Dosage: 400 mg, UNK
     Route: 048
     Dates: start: 20091103
  2. GLIVEC [Suspect]
     Dosage: 400 mg
     Route: 048
     Dates: start: 20120914

REACTIONS (3)
  - Death [Fatal]
  - Vomiting [Unknown]
  - Pain in extremity [Unknown]
